FAERS Safety Report 13277100 (Version 1)
Quarter: 2017Q1

REPORT INFORMATION
  Report Type: Spontaneous
  Country: US (occurrence: US)
  Receive Date: 20170228
  Receipt Date: 20170228
  Transmission Date: 20170428
  Serious: Yes (Life-Threatening)
  Sender: FDA-Public Use
  Company Number: None

PATIENT
  Age: 83 Year
  Sex: Female
  Weight: 68.1 kg

DRUGS (1)
  1. AZITHROMYCIN ANHYDROUS. [Suspect]
     Active Substance: AZITHROMYCIN ANHYDROUS
     Indication: INFECTION
     Dosage: 2 PILLS, BY MOUTH
     Route: 048
     Dates: start: 20161205, end: 20161207

REACTIONS (2)
  - Muscle spasms [None]
  - Haematochezia [None]

NARRATIVE: CASE EVENT DATE: 20161205
